FAERS Safety Report 13082696 (Version 2)
Quarter: 2017Q1

REPORT INFORMATION
  Report Type: Report from Study
  Country: BE (occurrence: BE)
  Receive Date: 20170103
  Receipt Date: 20170112
  Transmission Date: 20170428
  Serious: Yes (Disabling)
  Sender: FDA-Public Use
  Company Number: PHHY2016BE131784

PATIENT
  Age: 78 Year
  Sex: Male

DRUGS (4)
  1. TRAMETINIB [Suspect]
     Active Substance: TRAMETINIB
     Indication: METASTATIC MALIGNANT MELANOMA
     Dosage: 2 MG, QD
     Route: 048
     Dates: start: 20160912, end: 20161010
  2. TRAMETINIB [Suspect]
     Active Substance: TRAMETINIB
     Dosage: 4.5 MG, (2 MG 2 DAYS, O MG 1 DAY) UNKUNK
     Route: 048
     Dates: start: 20161020, end: 20161222
  3. DABRAFENIB [Suspect]
     Active Substance: DABRAFENIB
     Indication: METASTATIC MALIGNANT MELANOMA
     Dosage: 150 MG, BID
     Route: 048
     Dates: start: 20160912, end: 20161010
  4. DABRAFENIB [Suspect]
     Active Substance: DABRAFENIB
     Dosage: 150 MG, BID
     Route: 048
     Dates: start: 20161020, end: 20161222

REACTIONS (5)
  - Fatigue [Recovering/Resolving]
  - Drug intolerance [Unknown]
  - Muscular weakness [Recovering/Resolving]
  - Dyspnoea [Not Recovered/Not Resolved]
  - Asthenia [Recovering/Resolving]

NARRATIVE: CASE EVENT DATE: 201609
